FAERS Safety Report 6638991-0 (Version None)
Quarter: 2010Q1

REPORT INFORMATION
  Report Type: 
  Country: None (occurrence: None)
  Receive Date: 20100317
  Receipt Date: 20100311
  Transmission Date: 20100710
  Serious: Yes (Hospitalization)
  Sender: FDA-Public Use
  Company Number: BR-ASTRAZENECA-2010SE10865

PATIENT
  Age: 56 Year
  Sex: Female

DRUGS (7)
  1. CRESTOR [Suspect]
     Indication: BLOOD CHOLESTEROL INCREASED
     Route: 048
     Dates: start: 20060101
  2. CRESTOR [Suspect]
     Route: 048
     Dates: start: 20090101
  3. UNKNOWN [Concomitant]
     Indication: HORMONE REPLACEMENT THERAPY
     Route: 048
     Dates: end: 20070101
  4. CLOPIDOGREL [Concomitant]
     Indication: ANTICOAGULANT THERAPY
     Dates: start: 20070101
  5. ATENOLOL [Concomitant]
     Indication: HYPERTENSION
     Dates: start: 20070101
  6. ATENOLOL [Concomitant]
     Indication: ARRHYTHMIA
     Dates: start: 20070101
  7. SERTRALINE HCL [Concomitant]
     Indication: DEPRESSION
     Dates: start: 20080101

REACTIONS (2)
  - EMBOLIC STROKE [None]
  - MYALGIA [None]
